FAERS Safety Report 7095123-5 (Version None)
Quarter: 2010Q4

REPORT INFORMATION
  Report Type: 
  Country: None (occurrence: None)
  Receive Date: 20101111
  Receipt Date: 20101105
  Transmission Date: 20110411
  Serious: No
  Sender: FDA-Public Use
  Company Number: US-BIOGENIDEC-2010BI039202

PATIENT
  Age: 39 Year
  Sex: Female

DRUGS (4)
  1. TYSABRI [Suspect]
     Indication: MULTIPLE SCLEROSIS
     Route: 042
     Dates: start: 20080501, end: 20100528
  2. TYSABRI [Suspect]
     Route: 042
     Dates: start: 20100811
  3. AVONEX [Concomitant]
     Indication: MULTIPLE SCLEROSIS
     Route: 030
     Dates: start: 20030308
  4. AVONEX [Concomitant]
     Route: 030
     Dates: start: 20071110

REACTIONS (2)
  - GENERAL SYMPTOM [None]
  - LETHARGY [None]
